FAERS Safety Report 6138779-3 (Version None)
Quarter: 2009Q1

REPORT INFORMATION
  Report Type: 
  Country: None (occurrence: None)
  Receive Date: 20090327
  Receipt Date: 20090317
  Transmission Date: 20090719
  Serious: Yes (Death, Life-Threatening)
  Sender: FDA-Public Use
  Company Number: 20090085

PATIENT
  Age: 55 Year
  Sex: Female

DRUGS (8)
  1. VENOFER [Suspect]
     Indication: ANAEMIA
     Dosage: 300 MG INTRAVENOUS
     Route: 042
     Dates: start: 20090211, end: 20090211
  2. TEGRETOL (CARBAMAZEPIN) [Concomitant]
  3. DIGOXIN [Concomitant]
  4. BISOPROLOL FUMARATE [Concomitant]
  5. INEXIM (ESOMEPRAZOL) [Concomitant]
  6. LIORESAL [Concomitant]
  7. LAROXYL (AMITRIPTYLIN) [Concomitant]
  8. SPIRONOLACTONE [Concomitant]

REACTIONS (3)
  - LOSS OF CONSCIOUSNESS [None]
  - MALAISE [None]
  - MYDRIASIS [None]
